FAERS Safety Report 17441818 (Version 2)
Quarter: 2020Q3

REPORT INFORMATION
  Report Type: Report from Study
  Country: GB (occurrence: GB)
  Receive Date: 20200220
  Receipt Date: 20200923
  Transmission Date: 20201102
  Serious: Yes (Hospitalization, Other)
  Sender: FDA-Public Use
  Company Number: GB-MYLANLABS-2020M1019008

PATIENT
  Age: 60 Year
  Sex: Female

DRUGS (31)
  1. DOCETAXEL. [Suspect]
     Active Substance: DOCETAXEL
     Indication: BREAST CANCER METASTATIC
     Dosage: 150 MILLIGRAM, Q3W
     Route: 042
     Dates: start: 20151127, end: 20160308
  2. PERTUZUMAB. [Suspect]
     Active Substance: PERTUZUMAB
     Indication: BREAST CANCER METASTATIC
     Dosage: 840 MILLIGRAM, Q3W
     Route: 042
     Dates: start: 20151125, end: 20151125
  3. GENTAMICIN. [Concomitant]
     Active Substance: GENTAMICIN
     Dosage: 320 MILLIGRAM
     Route: 042
     Dates: start: 20190617, end: 20190617
  4. DENOSUMAB [Concomitant]
     Active Substance: DENOSUMAB
     Dosage: 120 MILLIGRAM, MONTHLY
     Route: 058
     Dates: start: 20150723
  5. LOPERAMIDE [Concomitant]
     Active Substance: LOPERAMIDE
     Dosage: 2 MILLIGRAM
     Route: 048
     Dates: start: 20151126
  6. DIFFLAM MOUTH [Concomitant]
     Dosage: 40 MILLILITER, QD (10 MILLILITER, 0.25 DAY)
     Route: 048
     Dates: start: 20160411
  7. GENTAMICIN. [Concomitant]
     Active Substance: GENTAMICIN
     Dosage: 280 MILLIGRAM
     Route: 042
     Dates: start: 20151203, end: 20151203
  8. CO?AMOXICLAV                       /01000301/ [Concomitant]
     Active Substance: AMOXICILLIN\CLAVULANATE POTASSIUM
     Dosage: 1875 MILLIGRAM, QD  (625 MG, 0.33 DAY)
     Route: 048
     Dates: start: 20151205, end: 20151208
  9. XGEVA [Concomitant]
     Active Substance: DENOSUMAB
     Dosage: 70 MILLIGRAM, MONTHLY
     Route: 058
     Dates: start: 20150820
  10. COLECALCIFEROL [Concomitant]
     Active Substance: CHOLECALCIFEROL
     Dosage: 1 DOSAGE FORM, QD
     Route: 048
     Dates: start: 20151203
  11. CLARITHROMYCIN. [Concomitant]
     Active Substance: CLARITHROMYCIN
     Dosage: 500 MILLIGRAM, QD
     Route: 042
     Dates: start: 20190614, end: 20190614
  12. FUROSEMIDE. [Concomitant]
     Active Substance: FUROSEMIDE
     Dosage: 20 MILLIGRAM, QD
     Route: 048
     Dates: start: 20190703
  13. CO?AMOXICLAV                       /01000301/ [Concomitant]
     Active Substance: AMOXICILLIN\CLAVULANATE POTASSIUM
     Dosage: 1875 MILLIGRAM, QD (625 MG, 0.33 DAY)
     Route: 048
     Dates: start: 20190125, end: 20190130
  14. LEVOFLOXACIN. [Concomitant]
     Active Substance: LEVOFLOXACIN
     Dosage: 500 MILLIGRAM
     Route: 048
     Dates: start: 20151130
  15. CLARITHROMYCIN. [Concomitant]
     Active Substance: CLARITHROMYCIN
     Dosage: 1000 MILLIGRAM, QD (500 MG, 0.5 DAY)
     Route: 048
     Dates: start: 20190311, end: 20190317
  16. CO?AMOXICLAV                       /01000301/ [Concomitant]
     Active Substance: AMOXICILLIN\CLAVULANATE POTASSIUM
     Dosage: 1875 MILLIGRAM, QD  (625 MG, 0.33 DAY)
     Route: 048
     Dates: start: 20190311, end: 20190317
  17. PERTUZUMAB. [Suspect]
     Active Substance: PERTUZUMAB
     Dosage: 420 MILLIGRAM, Q3W
     Route: 042
     Dates: start: 20151215, end: 20181204
  18. DEXAMETHASONE. [Concomitant]
     Active Substance: DEXAMETHASONE
     Dosage: 8 MILLIGRAM
     Route: 048
     Dates: start: 20151125
  19. FLUCONAZOLE. [Concomitant]
     Active Substance: FLUCONAZOLE
     Dosage: 50 MILLIGRAM
     Route: 048
     Dates: start: 20151130
  20. LETROZOLE. [Suspect]
     Active Substance: LETROZOLE
     Indication: BREAST CANCER METASTATIC
     Dosage: 2.5 MILLIGRAM, QD
     Route: 048
     Dates: start: 20150709, end: 20151015
  21. OSELTAMIVIR [Concomitant]
     Active Substance: OSELTAMIVIR
     Dosage: 150 MILLIGRAM, QD (75 MILLIGRAM, 0.5 DAY)
     Route: 048
     Dates: start: 20190125, end: 20190130
  22. DOMPERIDONE [Concomitant]
     Active Substance: DOMPERIDONE
     Dosage: 10 MILLIGRAM
     Route: 048
     Dates: start: 20151126
  23. CO?AMOXICLAV                       /01000301/ [Concomitant]
     Active Substance: AMOXICILLIN\CLAVULANATE POTASSIUM
     Dosage: 1.2 GRAM, 0.33 DAY
     Route: 042
  24. TRASTUZUMAB. [Suspect]
     Active Substance: TRASTUZUMAB
     Indication: BREAST CANCER METASTATIC
     Dosage: 672 MILLIGRAM, Q3W
     Route: 042
     Dates: start: 20151126, end: 20151126
  25. TRASTUZUMAB. [Suspect]
     Active Substance: TRASTUZUMAB
     Dosage: 672 MILLIGRAM, Q3W
     Route: 042
     Dates: start: 20151217, end: 20181204
  26. TRASTUZUMAB. [Suspect]
     Active Substance: TRASTUZUMAB
     Dosage: 400 MILLIGRAM, Q3W
     Route: 042
     Dates: start: 20190214, end: 20190602
  27. IRON SULFATE [Concomitant]
     Active Substance: FERROUS SULFATE ANHYDROUS
     Indication: ANAEMIA
     Dosage: 200 MILLIGRAM, QD
     Route: 048
  28. TAZOCIN [Concomitant]
     Active Substance: PIPERACILLIN SODIUM\TAZOBACTAM SODIUM
     Dosage: 4.5 GRAM
     Route: 042
     Dates: start: 20151203, end: 20151205
  29. LANSOPRAZOLE. [Concomitant]
     Active Substance: LANSOPRAZOLE
     Indication: DYSPEPSIA
     Dosage: 30 MILLIGRAM, QD
     Route: 048
     Dates: start: 20190510
  30. CALCICHEW [Concomitant]
     Active Substance: CALCIUM CARBONATE
     Dosage: 1.25 GRAM, QD
     Route: 048
     Dates: start: 20150723
  31. DALTEPARIN [Concomitant]
     Active Substance: DALTEPARIN
     Dosage: 2 DOSAGE FORM, QD
     Route: 058
     Dates: start: 20160421

REACTIONS (3)
  - Pulmonary embolism [Recovered/Resolved]
  - Pneumonitis [Recovered/Resolved]
  - Pneumonia [Recovered/Resolved with Sequelae]

NARRATIVE: CASE EVENT DATE: 20160419
